FAERS Safety Report 7374458-2 (Version None)
Quarter: 2011Q1

REPORT INFORMATION
  Report Type: 
  Country: None (occurrence: None)
  Receive Date: 20110317
  Receipt Date: 20110307
  Transmission Date: 20110831
  Serious: Yes (Hospitalization, Other)
  Sender: FDA-Public Use
  Company Number: CIP10001985

PATIENT
  Age: 70 Year
  Sex: Female
  Weight: 44.5 kg

DRUGS (33)
  1. OMEGA 3 FISH OIL (FISH OIL) [Concomitant]
  2. LEXAPRO [Concomitant]
  3. METHYLPREDISOLONE (METHYLPREDNISOLONE) [Concomitant]
  4. ZESTRIL [Concomitant]
  5. ACTONEL [Suspect]
     Dosage: 30 MG, DAILY, ORAL; 35 MG ONCE WEEKLY, ORAL
     Route: 048
     Dates: start: 20060405
  6. ACTONEL [Suspect]
     Dosage: 30 MG, DAILY, ORAL; 35 MG ONCE WEEKLY, ORAL
     Route: 048
     Dates: start: 20090501
  7. XANAX [Concomitant]
  8. CELEXA [Concomitant]
  9. MOVE FREE (CHONDROITIN SULFATE, GLUCOSAMINE) [Concomitant]
  10. VITAMIN C /00008001/ (ASCORBIC ACID) [Concomitant]
  11. BONIVA [Suspect]
     Dosage: DOSAGE /REGOMEN, ORAL
     Route: 048
     Dates: start: 20081023
  12. CELEBREX [Concomitant]
  13. ZYMAR [Concomitant]
  14. PREMPRO [Concomitant]
  15. ACTONEL [Suspect]
     Dosage: 35 MG ONCE WEEKLY, ORAL
     Route: 048
     Dates: start: 20040218, end: 20080328
  16. FOSAMAX [Concomitant]
     Indication: OSTEOPOROSIS
     Dosage: 70 MG ONCE WEEKLY, ORAL
     Route: 048
     Dates: start: 19880101, end: 20040219
  17. FOSAMAX [Concomitant]
     Indication: OSTEOPOROSIS PROPHYLAXIS
     Dosage: 70 MG ONCE WEEKLY, ORAL
     Route: 048
     Dates: start: 19880101, end: 20040219
  18. WELLBUTRIN [Concomitant]
  19. ERGOCALCIFEROL [Concomitant]
  20. LIPITOR [Concomitant]
  21. FEROCON (FERROUS FUMARTE, FOLIC ACID, VITAMIN-B-KOMPLEX STANDARD) [Concomitant]
  22. FLONASE [Concomitant]
  23. MULTIVITAMIN /01292901/ (VITAMINS NOS) [Concomitant]
  24. COUMADIN [Concomitant]
  25. DETROL LA [Concomitant]
  26. CO Q-10 (UBIDECARENONE) [Concomitant]
  27. MIACALCIN (CACITONIN, SALMON) [Concomitant]
  28. SINGULAIR [Concomitant]
  29. RESTORIL /00054301/ (CHLORMEZANONE) [Concomitant]
  30. VOLTAREN [Concomitant]
  31. CALCIUM (CALCIUM) [Concomitant]
  32. HALCON (TRIAZOLAM) [Concomitant]
  33. OXYGEN (OXYGEN) [Concomitant]

REACTIONS (30)
  - LOW TURNOVER OSTEOPATHY [None]
  - STRESS FRACTURE [None]
  - ECCHYMOSIS [None]
  - ATELECTASIS [None]
  - MUSCLE INJURY [None]
  - ARTHRALGIA [None]
  - FEMUR FRACTURE [None]
  - PATELLOFEMORAL PAIN SYNDROME [None]
  - BRONCHITIS CHRONIC [None]
  - BONE DISORDER [None]
  - TRAUMATIC FRACTURE [None]
  - RIB FRACTURE [None]
  - DEHYDRATION [None]
  - VOMITING [None]
  - DIZZINESS [None]
  - BALANCE DISORDER [None]
  - GAIT DISTURBANCE [None]
  - ANAEMIA POSTOPERATIVE [None]
  - ROAD TRAFFIC ACCIDENT [None]
  - DRUG INTOLERANCE [None]
  - PAIN IN EXTREMITY [None]
  - SKELETAL INJURY [None]
  - FALL [None]
  - HIP FRACTURE [None]
  - LUMBAR RADICULOPATHY [None]
  - FEMORAL NECK FRACTURE [None]
  - EMPHYSEMA [None]
  - MUSCULAR WEAKNESS [None]
  - UPPER RESPIRATORY TRACT INFECTION [None]
  - WEIGHT BEARING DIFFICULTY [None]
